FAERS Safety Report 15739086 (Version 1)
Quarter: 2018Q4

REPORT INFORMATION
  Report Type: Spontaneous
  Country: JP (occurrence: JP)
  Receive Date: 20181219
  Receipt Date: 20181219
  Transmission Date: 20190205
  Serious: Yes (Other)
  Sender: FDA-Public Use
  Company Number: JP-LANNETT COMPANY, INC.-JP-2018LAN004617

PATIENT
  Age: 12 Year
  Sex: Female

DRUGS (3)
  1. CLINDAMYCIN HYDROCHLORIDE (300 MG) [Suspect]
     Active Substance: CLINDAMYCIN HYDROCHLORIDE
     Indication: BRONCHITIS BACTERIAL
     Dosage: UNK
     Route: 065
  2. ACETAMINOPHEN. [Suspect]
     Active Substance: ACETAMINOPHEN
     Indication: PYREXIA
     Dosage: UNK
     Route: 065
  3. CEFTRIAXONE. [Suspect]
     Active Substance: CEFTRIAXONE
     Indication: BRONCHITIS BACTERIAL
     Dosage: UNK
     Route: 065

REACTIONS (1)
  - Tubulointerstitial nephritis and uveitis syndrome [Unknown]
